FAERS Safety Report 8387078-8 (Version None)
Quarter: 2012Q2

REPORT INFORMATION
  Report Type: 
  Country: None (occurrence: None)
  Receive Date: 20120525
  Receipt Date: 20120518
  Transmission Date: 20120825
  Serious: Yes (Hospitalization)
  Sender: FDA-Public Use
  Company Number: US-ACTELION-A-US2012-64958

PATIENT

DRUGS (7)
  1. TRACLEER [Suspect]
     Dosage: 62.5 MG, BID
     Route: 048
  2. TRACLEER [Suspect]
  3. TRACLEER [Suspect]
     Dosage: UNK
  4. SILDENAFIL [Concomitant]
  5. PLAVIX [Concomitant]
  6. TRACLEER [Suspect]
     Indication: PULMONARY ARTERIAL HYPERTENSION
     Dosage: 125 MG, BID
     Route: 048
  7. TRACLEER [Suspect]
     Dosage: 62.5 MG, BID
     Route: 048
     Dates: start: 20120320

REACTIONS (4)
  - TREMOR [None]
  - GUILLAIN-BARRE SYNDROME [None]
  - FEELING COLD [None]
  - HEART RATE INCREASED [None]
